FAERS Safety Report 10393408 (Version 2)
Quarter: 2014Q3

REPORT INFORMATION
  Report Type: Report from Study
  Country: BR (occurrence: BR)
  Receive Date: 20140819
  Receipt Date: 20140827
  Transmission Date: 20150326
  Serious: Yes (Other)
  Sender: FDA-Public Use
  Company Number: PHHY2014BR103112

PATIENT
  Sex: Male
  Weight: 96 kg

DRUGS (2)
  1. DIOVAN HCT [Suspect]
     Active Substance: HYDROCHLOROTHIAZIDE\VALSARTAN
     Indication: HYPERTENSION
     Dosage: 1 TABLET (320/25 MG), QD (DAILY, IN THE MORNING)
  2. LEVAMLODIPINE [Suspect]
     Active Substance: LEVAMLODIPINE
     Indication: HYPERTENSION
     Dosage: 1 TABLET, QD (DAILY, IN THE MORNING)

REACTIONS (4)
  - Dyspnoea [Recovered/Resolved]
  - Asthma [Recovered/Resolved]
  - Pain [Unknown]
  - Fatigue [Recovered/Resolved]
